FAERS Safety Report 5430767-5 (Version None)
Quarter: 2007Q3

REPORT INFORMATION
  Report Type: 
  Country: None (occurrence: None)
  Receive Date: 20070830
  Receipt Date: 20061114
  Transmission Date: 20080115
  Serious: No
  Sender: FDA-Public Use
  Company Number: A0627492A

PATIENT
  Age: 58 Year
  Sex: Male

DRUGS (15)
  1. WELLBUTRIN XL [Suspect]
     Indication: DEPRESSION
     Dosage: 300MG PER DAY
     Route: 048
     Dates: start: 20050101
  2. ECOTRIN [Concomitant]
  3. B6 [Concomitant]
  4. FOLIC ACID [Concomitant]
  5. HYTRIN [Concomitant]
  6. VITAMIN E [Concomitant]
  7. OMEGA 3 [Concomitant]
  8. MULTI-VITAMIN [Concomitant]
  9. GABAPENTIN [Concomitant]
  10. LOVASTATIN [Concomitant]
  11. SYNTHROID [Concomitant]
  12. SAW PALMETTO [Concomitant]
  13. COQ10 [Concomitant]
  14. FENTANYL TRANSDERMAL SYSTEM [Concomitant]
  15. L-ACETYL CARNITINE [Concomitant]

REACTIONS (2)
  - DEPRESSIVE SYMPTOM [None]
  - SEXUAL DYSFUNCTION [None]
